FAERS Safety Report 17548695 (Version 1)
Quarter: 2020Q1

REPORT INFORMATION
  Report Type: Spontaneous
  Country: US (occurrence: US)
  Receive Date: 20200306
  Receipt Date: 20200306
  Transmission Date: 20200409
  Serious: No
  Sender: FDA-Public Use
  Company Number: None

PATIENT
  Age: 64 Year
  Sex: Male

DRUGS (1)
  1. SUCCINYLCHOLINE (SUCCINYLCHOLINE CHLORIDE 1000MG/VIL INJ) [Suspect]
     Active Substance: SUCCINYLCHOLINE CHLORIDE
     Dates: start: 20190918

REACTIONS (1)
  - Anaphylactic reaction [None]

NARRATIVE: CASE EVENT DATE: 20190918
